FAERS Safety Report 9382148 (Version 1)
Quarter: 2013Q3

REPORT INFORMATION
  Report Type: Spontaneous
  Country: US (occurrence: US)
  Receive Date: 20130703
  Receipt Date: 20130703
  Transmission Date: 20140515
  Serious: No
  Sender: FDA-Public Use
  Company Number: US-ASTRAZENECA-2013SE42447

PATIENT
  Age: 58 Year
  Sex: Female

DRUGS (2)
  1. CRESTOR [Suspect]
     Route: 048
     Dates: end: 20110611
  2. STATINS [Concomitant]

REACTIONS (3)
  - Blood triglycerides abnormal [Not Recovered/Not Resolved]
  - Myopathy [Unknown]
  - Intentional drug misuse [Unknown]
